FAERS Safety Report 25664751 (Version 1)
Quarter: 2025Q3

REPORT INFORMATION
  Report Type: Spontaneous
  Country: GB (occurrence: GB)
  Receive Date: 20250811
  Receipt Date: 20250811
  Transmission Date: 20251021
  Serious: Yes (Other)
  Sender: TEVA
  Company Number: GB-MHRA-TPP12617018C9528051YC1754393868143

PATIENT
  Age: 71 Year
  Sex: Female
  Weight: 74 kg

DRUGS (4)
  1. AMLODIPINE [Suspect]
     Active Substance: AMLODIPINE BESYLATE
     Indication: Ill-defined disorder
     Route: 065
     Dates: start: 20250203, end: 20250805
  2. ZEROBASE [Concomitant]
     Indication: Ill-defined disorder
     Route: 065
     Dates: start: 20250707, end: 20250804
  3. FLUTICASONE PROPIONATE [Concomitant]
     Active Substance: FLUTICASONE PROPIONATE
     Indication: Ill-defined disorder
     Dosage: TWO SPRAYS TO BE USED IN EACH NOSTRIL ONCE A DAY
     Dates: start: 20241024
  4. ZERODERM [Concomitant]
     Indication: Ill-defined disorder
     Dates: start: 20250402

REACTIONS (2)
  - Rash erythematous [Recovering/Resolving]
  - Joint swelling [Recovering/Resolving]
